FAERS Safety Report 24828535 (Version 3)
Quarter: 2025Q3

REPORT INFORMATION
  Report Type: Report from Study
  Country: KR (occurrence: KR)
  Receive Date: 20250110
  Receipt Date: 20250831
  Transmission Date: 20251021
  Serious: Yes (Death, Hospitalization)
  Sender: ABBVIE
  Company Number: KR-ABBVIE-6074425

PATIENT
  Age: 70 Year
  Sex: Male
  Weight: 64 kg

DRUGS (14)
  1. VENCLEXTA [Suspect]
     Active Substance: VENETOCLAX
     Indication: Acute myeloid leukaemia
     Route: 048
     Dates: start: 20240821, end: 20240904
  2. Duorovan [Concomitant]
     Indication: Hypertension
     Dosage: FORM STRENGTH: 10/5MG
     Route: 048
     Dates: start: 20240821
  3. AMLODIPINE BESYLATE\HYDROCHLOROTHIAZIDE\OLMESARTAN MEDOXOMIL [Concomitant]
     Active Substance: AMLODIPINE BESYLATE\HYDROCHLOROTHIAZIDE\OLMESARTAN MEDOXOMIL
     Indication: Hypertension
     Dosage: FORM STRENGTH: 5/40/12.5MG
     Route: 048
     Dates: start: 20240821
  4. CELEBREX [Concomitant]
     Active Substance: CELECOXIB
     Indication: Pain prophylaxis
     Dosage: FORM STRENGTH: 200MG
     Route: 048
     Dates: start: 20240821
  5. ALLOPURINOL [Concomitant]
     Active Substance: ALLOPURINOL
     Indication: Prophylaxis
     Dosage: FORM STRENGTH: 100MG
     Route: 048
     Dates: start: 20240821, end: 20240922
  6. ACYCLOVIR [Concomitant]
     Active Substance: ACYCLOVIR
     Indication: Neoplasm prophylaxis
     Dosage: FORM STRENGTH: 200MG
     Route: 048
     Dates: start: 20240821, end: 20240823
  7. Boryungbio astrix [Concomitant]
     Indication: Cerebrovascular accident
     Dosage: FORM STRENGTH: 100MG
     Route: 048
     Dates: start: 20240821, end: 20241007
  8. Daewoong meropenem [Concomitant]
     Indication: Pneumonia klebsiella
     Dosage: UNIT DOSE: 1 VIAL. FORM STRENGTH: 500MG
     Route: 042
     Dates: start: 20241209, end: 20241218
  9. Solondo [Concomitant]
     Indication: Supportive care
     Route: 048
     Dates: start: 20240821, end: 20240906
  10. VIDAZA [Concomitant]
     Active Substance: AZACITIDINE
     Indication: Acute myeloid leukaemia
     Dosage: FORM STRENGTH: 100MG
     Route: 042
     Dates: start: 20240821, end: 20240827
  11. Colis [Concomitant]
     Indication: Pneumonia klebsiella
     Route: 042
     Dates: start: 20241209, end: 20241218
  12. Tazoperan [Concomitant]
     Indication: Neoplasm prophylaxis
     Route: 042
     Dates: start: 20240923, end: 20241006
  13. Tazoperan [Concomitant]
     Indication: Neoplasm prophylaxis
     Route: 042
     Dates: start: 20240821, end: 20240906
  14. Myungmoon aspirin [Concomitant]
     Indication: Pneumonia klebsiella
     Route: 042
     Dates: start: 20241206, end: 20241208

REACTIONS (2)
  - Subarachnoid haemorrhage [Fatal]
  - Cellulitis [Recovered/Resolved]

NARRATIVE: CASE EVENT DATE: 20240923
